FAERS Safety Report 26034700 (Version 1)
Quarter: 2025Q4

REPORT INFORMATION
  Report Type: Spontaneous
  Country: US (occurrence: US)
  Receive Date: 20251112
  Receipt Date: 20251112
  Transmission Date: 20260118
  Serious: Yes (Life-Threatening, Hospitalization)
  Sender: MYLAN
  Company Number: US-MYLANLABS-2025M1095713

PATIENT
  Age: 69 Year
  Sex: Female

DRUGS (1)
  1. APIXABAN [Suspect]
     Active Substance: APIXABAN
     Indication: Atrial fibrillation
     Dosage: UNK

REACTIONS (6)
  - Splenic injury [Recovered/Resolved]
  - Shock haemorrhagic [Recovered/Resolved]
  - Haemodynamic instability [Recovered/Resolved]
  - Splenic haematoma [Recovered/Resolved]
  - Haemorrhage [Recovered/Resolved]
  - Haemoperitoneum [Recovered/Resolved]
